FAERS Safety Report 18182241 (Version 2)
Quarter: 2020Q3

REPORT INFORMATION
  Report Type: Report from Study
  Country: FR (occurrence: FR)
  Receive Date: 20200821
  Receipt Date: 20200831
  Transmission Date: 20201104
  Serious: Yes (Hospitalization)
  Sender: FDA-Public Use
  Company Number: FR-DSJP-DSE-2020-123380

PATIENT
  Age: 65 Year
  Sex: Female
  Weight: 63 kg

DRUGS (7)
  1. EMEND [Concomitant]
     Active Substance: APREPITANT
     Indication: PROPHYLAXIS
     Dosage: 125 MG, CYCLIC, EACH D1
     Route: 048
     Dates: start: 20200529
  2. DUROGESIC [Concomitant]
     Active Substance: FENTANYL
     Indication: BACK PAIN
     Dosage: 50 UG, QD
     Route: 048
     Dates: start: 20200804
  3. EMEND [Concomitant]
     Active Substance: APREPITANT
     Dosage: 80 MG, CYCLIC, EACH D1
     Route: 048
     Dates: start: 20200529
  4. TRASTUZUMAB DERUXTECAN. [Suspect]
     Active Substance: TRASTUZUMAB DERUXTECAN
     Indication: BREAST CANCER METASTATIC
     Dosage: UNK, CYCLIC
     Route: 042
     Dates: start: 20200529, end: 20200721
  5. ZOPHREN                            /00955301/ [Concomitant]
     Active Substance: ONDANSETRON
     Indication: PROPHYLAXIS
     Dosage: 16 MG, CYCLIC, EACH D1
     Route: 048
     Dates: start: 20200529
  6. OMEPRAZOLE. [Concomitant]
     Active Substance: OMEPRAZOLE
     Indication: ABDOMINAL PAIN UPPER
     Dosage: 10 MG, QD
     Route: 048
     Dates: start: 20200529
  7. PRIMPERAN [Concomitant]
     Active Substance: METOCLOPRAMIDE HYDROCHLORIDE
     Indication: NAUSEA
     Dosage: 10 MG, AS NEEDED
     Dates: start: 20200529

REACTIONS (2)
  - Pain [Recovered/Resolved with Sequelae]
  - Thrombocytopenia [Recovered/Resolved with Sequelae]

NARRATIVE: CASE EVENT DATE: 20200814
